FAERS Safety Report 13374874 (Version 3)
Quarter: 2017Q3

REPORT INFORMATION
  Report Type: Spontaneous
  Country: US (occurrence: US)
  Receive Date: 20170327
  Receipt Date: 20170817
  Transmission Date: 20171127
  Serious: Yes (Death)
  Sender: FDA-Public Use
  Company Number: US-VIFOR (INTERNATIONAL) INC.-VIT-2017-02917

PATIENT
  Age: 67 Year
  Sex: Male

DRUGS (19)
  1. LATANOPROST. [Concomitant]
     Active Substance: LATANOPROST
     Dosage: 1 DROP
  2. OMEPRAZOLE. [Concomitant]
     Active Substance: OMEPRAZOLE
     Route: 048
  3. CODEINE PHOSPHATE [Concomitant]
     Active Substance: CODEINE PHOSPHATE
     Dosage: 300-30 MG
     Route: 048
  4. LANTUS [Concomitant]
     Active Substance: INSULIN GLARGINE
     Dosage: 100 UNIT/ML
     Route: 058
  5. SODIUM POLYSTYRENE SULFONATE. [Concomitant]
     Active Substance: SODIUM POLYSTYRENE SULFONATE
     Dosage: 30GM/120ML
     Route: 054
     Dates: start: 20170215
  6. BRIMONIDINE TARTRATE. [Concomitant]
     Active Substance: BRIMONIDINE TARTRATE
  7. GUAIFENESIN. [Concomitant]
     Active Substance: GUAIFENESIN
     Indication: COUGH
     Dosage: 100MG/5ML
     Route: 048
     Dates: start: 20170105
  8. METOPROLOL SUCCINATE. [Concomitant]
     Active Substance: METOPROLOL SUCCINATE
     Route: 048
     Dates: start: 20170213
  9. INSULIN [Concomitant]
     Active Substance: INSULIN NOS
     Dates: start: 20150514
  10. NYSTATIN TRIMCINOLONE [Concomitant]
     Dates: start: 20140807
  11. VELTASSA [Suspect]
     Active Substance: PATIROMER
     Indication: HYPERKALAEMIA
     Route: 048
     Dates: start: 20170220, end: 20170313
  12. OMEPRAZOLE. [Concomitant]
     Active Substance: OMEPRAZOLE
     Route: 048
     Dates: start: 20161019
  13. SIMVASTATIN. [Concomitant]
     Active Substance: SIMVASTATIN
     Indication: BLOOD CHOLESTEROL ABNORMAL
     Route: 048
     Dates: start: 20160713
  14. ALLOPURINOL. [Concomitant]
     Active Substance: ALLOPURINOL
     Route: 048
     Dates: start: 20170213
  15. AMLODIPINE BESILATE [Concomitant]
     Active Substance: AMLODIPINE BESYLATE
     Dosage: 1 TABLET DAILY
     Route: 048
     Dates: start: 20170105
  16. FUROSEMIDE. [Concomitant]
     Active Substance: FUROSEMIDE
     Route: 048
     Dates: start: 20170215
  17. METOLAZONE. [Concomitant]
     Active Substance: METOLAZONE
     Dosage: ONE TABLET ONE HOUR BEFORE OTHER MEDICATIONS FOR 10 DAYS
     Route: 048
     Dates: start: 20170105
  18. TRADJENTA [Concomitant]
     Active Substance: LINAGLIPTIN
     Route: 048
  19. NOVOLOG [Concomitant]
     Active Substance: INSULIN ASPART
     Dosage: 100 UNIT/ML EVERY MORNING
     Route: 058
     Dates: start: 20160303

REACTIONS (1)
  - Death [Fatal]

NARRATIVE: CASE EVENT DATE: 20170313
